FAERS Safety Report 7764790-2 (Version None)
Quarter: 2011Q3

REPORT INFORMATION
  Report Type: 
  Country: None (occurrence: None)
  Receive Date: 20110921
  Receipt Date: 20110921
  Transmission Date: 20111222
  Serious: Yes (Death, Life-Threatening, Hospitalization, Disabling, Congenital Anomaly, Other)
  Sender: FDA-Public Use
  Company Number: None

PATIENT
  Age: 42 Year
  Sex: Female
  Weight: 56.699 kg

DRUGS (3)
  1. NICOTINE TRANSDERMAL SYSTEM (OTC) [Suspect]
     Indication: SMOKING CESSATION THERAPY
     Dosage: 1 PATCH
     Route: 062
     Dates: start: 20110915, end: 20110919
  2. FAMOTIDINE [Concomitant]
     Route: 048
  3. HYDROCODONE 5/500MG [Concomitant]
     Route: 048

REACTIONS (4)
  - CONFUSIONAL STATE [None]
  - NAUSEA [None]
  - VOMITING [None]
  - HEADACHE [None]
